FAERS Safety Report 10085141 (Version 1)
Quarter: 2014Q2

REPORT INFORMATION
  Report Type: Spontaneous
  Country: US (occurrence: None)
  Receive Date: 20140409
  Receipt Date: 20140409
  Transmission Date: 20141212
  Serious: Yes (Other)
  Sender: FDA-Public Use
  Company Number: SP06628

PATIENT
  Sex: Female

DRUGS (1)
  1. OSMOPREP [Suspect]
     Indication: BOWEL PREPARATION
     Dosage: 4 TABLETS, ORAL
     Route: 048
     Dates: start: 2013, end: 2013

REACTIONS (5)
  - Anaphylactic reaction [None]
  - Oral pruritus [None]
  - Eye swelling [None]
  - Urticaria [None]
  - Throat tightness [None]
